FAERS Safety Report 21796649 (Version 1)
Quarter: 2022Q4

REPORT INFORMATION
  Report Type: Report from Study
  Country: US (occurrence: US)
  Receive Date: 20221229
  Receipt Date: 20221229
  Transmission Date: 20230113
  Serious: No
  Sender: FDA-Public Use
  Company Number: US-ABBVIE-4220390

PATIENT
  Sex: Female

DRUGS (2)
  1. HUMIRA [Suspect]
     Active Substance: ADALIMUMAB
     Indication: Rheumatoid arthritis
     Dosage: STRENGTH - 40 MG
     Route: 058
     Dates: start: 20221121
  2. COVID-19 vaccine [Concomitant]
     Indication: COVID-19 immunisation
     Dosage: FREQUENCY ONE IN ONCE
     Route: 030

REACTIONS (3)
  - Pain in extremity [Recovered/Resolved]
  - Fatigue [Recovered/Resolved]
  - Limb discomfort [Recovered/Resolved]
